FAERS Safety Report 18897964 (Version 1)
Quarter: 2021Q1

REPORT INFORMATION
  Report Type: Spontaneous
  Country: US (occurrence: US)
  Receive Date: 20210216
  Receipt Date: 20210216
  Transmission Date: 20210420
  Serious: Yes (Death, Hospitalization, Other)
  Sender: FDA-Public Use
  Company Number: US-SHILPA MEDICARE LIMITED-SML-US-2021-00171

PATIENT
  Age: 8 Year
  Sex: Male

DRUGS (7)
  1. RABBIT ANTITHYMOGLOBULINE [Suspect]
     Active Substance: LAPINE T-LYMPHOCYTE IMMUNE GLOBULIN
     Indication: IPEX SYNDROME
     Route: 065
  2. FLUDARABINE [Suspect]
     Active Substance: FLUDARABINE PHOSPHATE
     Dosage: FOR 3 DAYS BEGAN ON DAY + 39 POSTTRANSPLANT.
     Route: 065
  3. FLUDARABINE [Suspect]
     Active Substance: FLUDARABINE PHOSPHATE
     Indication: IPEX SYNDROME
     Route: 065
  4. MYCOPHENOLATE MOFETIL. [Suspect]
     Active Substance: MYCOPHENOLATE MOFETIL
     Indication: PROPHYLAXIS AGAINST GRAFT VERSUS HOST DISEASE
     Route: 065
  5. CYCLOPHOSPHAMIDE. [Suspect]
     Active Substance: CYCLOPHOSPHAMIDE
     Indication: IPEX SYNDROME
     Route: 065
  6. CYCLOSPORINE. [Suspect]
     Active Substance: CYCLOSPORINE
     Indication: PROPHYLAXIS AGAINST GRAFT VERSUS HOST DISEASE
     Route: 065
  7. BUSULFAN, UNKNOWN [Suspect]
     Active Substance: BUSULFAN
     Indication: IPEX SYNDROME
     Route: 065

REACTIONS (9)
  - Staphylococcal infection [Fatal]
  - Cytomegalovirus viraemia [Fatal]
  - Hypotension [Unknown]
  - Right ventricular systolic pressure increased [Unknown]
  - Multiple organ dysfunction syndrome [Fatal]
  - Hypoxia [Unknown]
  - Candida infection [Fatal]
  - COVID-19 [Fatal]
  - Polyomavirus viraemia [Fatal]
